FAERS Safety Report 6616844-1 (Version None)
Quarter: 2010Q1

REPORT INFORMATION
  Report Type: 
  Country: None (occurrence: None)
  Receive Date: 20100301
  Receipt Date: 20100219
  Transmission Date: 20100710
  Serious: Yes (Other)
  Sender: FDA-Public Use
  Company Number: TCI2010A00326

PATIENT
  Age: 7 Decade
  Sex: Male

DRUGS (2)
  1. ACTOS [Suspect]
     Dosage: PRE ORAL
     Route: 048
  2. ATELEC (CLINIDIPINE) [Concomitant]

REACTIONS (2)
  - ABDOMINAL DISTENSION [None]
  - GASTRIC DILATATION [None]
